FAERS Safety Report 17572243 (Version 1)
Quarter: 2020Q1

REPORT INFORMATION
  Report Type: Spontaneous
  Country: US (occurrence: US)
  Receive Date: 20200323
  Receipt Date: 20200323
  Transmission Date: 20200409
  Serious: Yes (Other)
  Sender: FDA-Public Use
  Company Number: US-SA-2020SA071865

PATIENT
  Sex: Female

DRUGS (3)
  1. HYDROXYCHLOROQUINE [Interacting]
     Active Substance: HYDROXYCHLOROQUINE
  2. DOCETAXEL. [Suspect]
     Active Substance: DOCETAXEL
  3. ANASTROZOLE. [Concomitant]
     Active Substance: ANASTROZOLE

REACTIONS (4)
  - Retinopathy [Unknown]
  - Visual field defect [Unknown]
  - Detachment of retinal pigment epithelium [Unknown]
  - Drug interaction [Unknown]
